FAERS Safety Report 17849931 (Version 1)
Quarter: 2020Q2

REPORT INFORMATION
  Report Type: Spontaneous
  Country: US (occurrence: US)
  Receive Date: 20200601
  Receipt Date: 20200601
  Transmission Date: 20200714
  Serious: Yes (Hospitalization)
  Sender: FDA-Public Use
  Company Number: None

PATIENT
  Sex: Male

DRUGS (16)
  1. ABIRATERONE ACETATE. [Concomitant]
     Active Substance: ABIRATERONE ACETATE
  2. PREDNISONE 5MG TAB [Suspect]
     Active Substance: PREDNISONE
     Indication: PROSTATE CANCER
     Route: 048
     Dates: start: 20181229
  3. EZETIMBE [Concomitant]
     Active Substance: EZETIMIBE
  4. METOLAZONE. [Concomitant]
     Active Substance: METOLAZONE
  5. GABAPENTIN. [Concomitant]
     Active Substance: GABAPENTIN
  6. FLUDROCORT [Concomitant]
  7. PREDNISONE. [Concomitant]
     Active Substance: PREDNISONE
  8. TORSEMIDE. [Concomitant]
     Active Substance: TORSEMIDE
  9. MEGESTEROL AC [Concomitant]
  10. ATORVASTATIN [Concomitant]
     Active Substance: ATORVASTATIN
  11. LEVOFLOXACIN. [Concomitant]
     Active Substance: LEVOFLOXACIN
  12. METFORMIN [Concomitant]
     Active Substance: METFORMIN HYDROCHLORIDE
  13. ALLOPURINOL. [Concomitant]
     Active Substance: ALLOPURINOL
  14. METHYLPRED [Concomitant]
     Active Substance: METHYLPREDNISOLONE
  15. LISINOPRIL. [Concomitant]
     Active Substance: LISINOPRIL
  16. PROCHLORPER [Concomitant]

REACTIONS (1)
  - Gallbladder operation [None]
